FAERS Safety Report 5961744-3 (Version None)
Quarter: 2008Q4

REPORT INFORMATION
  Report Type: 
  Country: None (occurrence: None)
  Receive Date: 20081121
  Receipt Date: 20081107
  Transmission Date: 20090506
  Serious: Yes (Hospitalization)
  Sender: FDA-Public Use
  Company Number: JP-AVENTIS-200820265GDDC

PATIENT
  Age: 79 Year
  Sex: Female

DRUGS (11)
  1. RIFADIN [Suspect]
     Indication: PULMONARY TUBERCULOSIS
     Route: 048
     Dates: start: 20080501, end: 20081003
  2. ISONIAZID [Suspect]
     Indication: PULMONARY TUBERCULOSIS
     Route: 048
     Dates: start: 20080501, end: 20081003
  3. ETHAMBUTOL HCL [Concomitant]
     Indication: PULMONARY TUBERCULOSIS
     Dosage: DOSE: 500 MG MON, WED, FRI AFTER DIALYSIS
     Dates: start: 20080501, end: 20080819
  4. CLARITIN [Concomitant]
     Route: 048
  5. ONEALFA [Concomitant]
     Route: 048
     Dates: end: 20081006
  6. CALTAN [Concomitant]
     Indication: BLOOD PHOSPHORUS INCREASED
     Route: 048
  7. BIOFERMIN [Concomitant]
     Dosage: DOSE: 3 IN 1 DAY
     Route: 048
  8. ARTIST [Concomitant]
     Indication: ARRHYTHMIA
     Route: 048
  9. OMEPRAL [Concomitant]
     Indication: GASTRIC ULCER
     Route: 048
  10. PURSENNID                          /00571901/ [Concomitant]
     Indication: CONSTIPATION
     Route: 048
  11. HEPARIN [Concomitant]
     Indication: DIALYSIS
     Dates: end: 20081006

REACTIONS (1)
  - COGNITIVE DISORDER [None]
